FAERS Safety Report 21895168 (Version 2)
Quarter: 2024Q1

REPORT INFORMATION
  Report Type: Report from Study
  Country: CN (occurrence: CN)
  Receive Date: 20230123
  Receipt Date: 20240325
  Transmission Date: 20240410
  Serious: Yes (Other)
  Sender: FDA-Public Use
  Company Number: CN-SUN PHARMACEUTICAL INDUSTRIES LTD-2022R1-370639

PATIENT
  Age: 62 Year
  Sex: Male

DRUGS (1)
  1. DECITABINE [Suspect]
     Active Substance: DECITABINE
     Indication: Myelodysplastic syndrome
     Dosage: 10 MILLIGRAM/SQ. METER, DAILY
     Route: 065

REACTIONS (2)
  - Therapeutic response decreased [Unknown]
  - Pneumonia [Unknown]
